FAERS Safety Report 6194577-6 (Version None)
Quarter: 2009Q2

REPORT INFORMATION
  Report Type: 
  Country: None (occurrence: None)
  Receive Date: 20090519
  Receipt Date: 20090508
  Transmission Date: 20091009
  Serious: Yes (Other)
  Sender: FDA-Public Use
  Company Number: US-ROCHE-632495

PATIENT
  Sex: Female
  Weight: 70.3 kg

DRUGS (2)
  1. CAPECITABINE [Suspect]
     Indication: BREAST CANCER
     Dosage: TABLET STRENGTH: 500 MG
     Route: 048
     Dates: start: 20090303, end: 20090414
  2. CAPECITABINE [Suspect]
     Dosage: TABLET STRENGTH: 150 MG
     Route: 048
     Dates: start: 20090414, end: 20090428

REACTIONS (2)
  - METASTASES TO LYMPH NODES [None]
  - PALMAR-PLANTAR ERYTHRODYSAESTHESIA SYNDROME [None]
